FAERS Safety Report 4426064-7 (Version None)
Quarter: 2004Q3

REPORT INFORMATION
  Report Type: 
  Country: None (occurrence: None)
  Receive Date: 20040811
  Receipt Date: 20040723
  Transmission Date: 20050211
  Serious: Yes (Other)
  Sender: FDA-Public Use
  Company Number: EWC040740076

PATIENT
  Age: 33 Year
  Sex: Female

DRUGS (4)
  1. FLUOXETINE [Suspect]
     Indication: DEPRESSION
     Dosage: 20 MG/2
     Dates: start: 20030301, end: 20040307
  2. FLUOXETINE [Suspect]
     Indication: EATING DISORDER
     Dosage: 20 MG/2
     Dates: start: 20030301, end: 20040307
  3. CELEBRA (CELECOXIB) [Concomitant]
  4. BEXTRA [Concomitant]

REACTIONS (2)
  - DRUG EXPOSURE DURING PREGNANCY [None]
  - INTRA-UTERINE DEATH [None]
